FAERS Safety Report 5427585-0 (Version None)
Quarter: 2007Q3

REPORT INFORMATION
  Report Type: 
  Country: None (occurrence: None)
  Receive Date: 20070828
  Receipt Date: 20070820
  Transmission Date: 20080115
  Serious: Yes (Death)
  Sender: FDA-Public Use
  Company Number: B0484493A

PATIENT
  Age: 79 Year
  Sex: Female

DRUGS (5)
  1. VALHERPES [Suspect]
     Indication: HERPES ZOSTER
     Route: 048
     Dates: start: 20070627, end: 20070701
  2. SPIRONOLACTONE [Concomitant]
     Route: 048
  3. OMEPRAZOLE [Concomitant]
     Route: 048
  4. ACOVIL [Concomitant]
  5. TIOTROPIUM [Concomitant]
     Route: 048

REACTIONS (7)
  - CHROMATURIA [None]
  - COORDINATION ABNORMAL [None]
  - DEPRESSED LEVEL OF CONSCIOUSNESS [None]
  - HEPATITIS [None]
  - JAUNDICE [None]
  - OLIGURIA [None]
  - RENAL FAILURE ACUTE [None]
